FAERS Safety Report 19297496 (Version 1)
Quarter: 2021Q2

REPORT INFORMATION
  Report Type: Report from Study
  Country: None (occurrence: US)
  Receive Date: 20210524
  Receipt Date: 20210524
  Transmission Date: 20210717
  Serious: Yes (Other)
  Sender: FDA-Public Use
  Company Number: US-ABBVIE-20K-163-3653301-00

PATIENT
  Sex: Female

DRUGS (3)
  1. HUMIRA [Suspect]
     Active Substance: ADALIMUMAB
     Indication: PSORIASIS
     Route: 058
     Dates: start: 202011
  2. HUMIRA [Suspect]
     Active Substance: ADALIMUMAB
     Indication: RHEUMATOID ARTHRITIS
     Dosage: DAY 8
     Route: 058
     Dates: start: 20201107, end: 20201107
  3. HUMIRA [Suspect]
     Active Substance: ADALIMUMAB
     Indication: PSORIASIS
     Dosage: DAY 1
     Route: 058
     Dates: start: 20201030, end: 20201030

REACTIONS (19)
  - Hypoaesthesia [Recovering/Resolving]
  - Fatigue [Unknown]
  - Dermatitis [Recovering/Resolving]
  - Insomnia [Recovering/Resolving]
  - Paraesthesia [Recovering/Resolving]
  - Eyelid pain [Recovering/Resolving]
  - Intervertebral disc operation [Unknown]
  - Spinal fusion surgery [Unknown]
  - Erythema of eyelid [Unknown]
  - Facial pain [Recovering/Resolving]
  - Intervertebral disc protrusion [Unknown]
  - Skin irritation [Unknown]
  - Cough [Recovered/Resolved]
  - Psoriasis [Recovering/Resolving]
  - Drug ineffective [Unknown]
  - Oropharyngeal pain [Recovered/Resolved]
  - Injection site bruising [Unknown]
  - Rhinorrhoea [Recovered/Resolved]
  - Helplessness [Recovered/Resolved]

NARRATIVE: CASE EVENT DATE: 2020
